FAERS Safety Report 15226642 (Version 3)
Quarter: 2018Q3

REPORT INFORMATION
  Report Type: Report from Study
  Country: EC (occurrence: EC)
  Receive Date: 20180801
  Receipt Date: 20180913
  Transmission Date: 20181010
  Serious: Yes (Hospitalization, Other)
  Sender: FDA-Public Use
  Company Number: PHHY2018EC057998

PATIENT
  Age: 56 Year
  Sex: Female
  Weight: 72 kg

DRUGS (2)
  1. NOVOLIN [Concomitant]
     Active Substance: INSULIN HUMAN
     Indication: DIABETES MELLITUS
     Dosage: 1 DF, BID (AFTER BREAKFAST AND AFTER DINNER)
     Route: 065
     Dates: start: 20180725
  2. ENTRESTO [Suspect]
     Active Substance: SACUBITRIL\VALSARTAN
     Indication: CARDIAC FAILURE
     Dosage: 50 MG (24.3 MG SACUBITRIL AND 25.7 MG VALSARTAN), BID
     Route: 048
     Dates: start: 20180315, end: 20180422

REACTIONS (16)
  - Cardiac failure [Not Recovered/Not Resolved]
  - Kidney infection [Unknown]
  - Coronary artery disease [Recovering/Resolving]
  - Cardiomyopathy [Unknown]
  - Gait disturbance [Recovering/Resolving]
  - Hypertension [Unknown]
  - Angina unstable [Recovering/Resolving]
  - Dizziness [Not Recovered/Not Resolved]
  - Cardiac valve disease [Unknown]
  - Renal disorder [Unknown]
  - Insomnia [Recovering/Resolving]
  - Pericardial effusion [Unknown]
  - Cardiomegaly [Not Recovered/Not Resolved]
  - Headache [Not Recovered/Not Resolved]
  - Asphyxia [Recovering/Resolving]
  - Blood glucose increased [Unknown]

NARRATIVE: CASE EVENT DATE: 201803
